FAERS Safety Report 4524972-X (Version None)
Quarter: 2004Q4

REPORT INFORMATION
  Report Type: 
  Country: None (occurrence: None)
  Receive Date: 20041117
  Receipt Date: 20030618
  Transmission Date: 20050328
  Serious: Yes (Other)
  Sender: FDA-Public Use
  Company Number: C2003-1530.01

PATIENT
  Age: 51 Year
  Sex: Male

DRUGS (13)
  1. CLOZAPINE [Suspect]
     Dosage: STARTED AT 25MG Q HS, TITRATED TO 500MG Q HS, ORAL
     Route: 048
     Dates: start: 20021114, end: 20030225
  2. CLOZAPINE [Suspect]
     Dosage: STARTED AT 25MG Q HS, TITRATED TO 500MG Q HS, ORAL
     Route: 048
     Dates: start: 20030306, end: 20030616
  3. ACETAMINOPHEN [Concomitant]
  4. ATORVASTATIN [Concomitant]
  5. CLOPIDOGREL [Concomitant]
  6. DIMENHYDRANATE [Concomitant]
  7. GUAIFENESIN [Concomitant]
  8. LEVOTHYROXINE SODIUM [Concomitant]
  9. MULTI-VITAMIN [Concomitant]
  10. PNEUMOVAX 23 [Concomitant]
  11. RANITIDINE [Concomitant]
  12. TETANUS/DIPTHERIA [Concomitant]
  13. CALCIUM WITH VITAMIN D [Concomitant]

REACTIONS (2)
  - LEUKOPENIA [None]
  - NEUTROPENIA [None]
